FAERS Safety Report 15186173 (Version 2)
Quarter: 2019Q1

REPORT INFORMATION
  Report Type: Report from Study
  Country: US (occurrence: US)
  Receive Date: 20180723
  Receipt Date: 20190130
  Transmission Date: 20190417
  Serious: No
  Sender: FDA-Public Use
  Company Number: US-EXELIXIS-CABO-18012811

PATIENT
  Sex: Male
  Weight: 72.56 kg

DRUGS (1)
  1. CABOMETYX [Suspect]
     Active Substance: CABOZANTINIB S-MALATE
     Indication: PAPILLARY RENAL CELL CARCINOMA
     Dosage: 40 MG, QD
     Route: 048
     Dates: start: 201711

REACTIONS (3)
  - Palmar-plantar erythrodysaesthesia syndrome [Unknown]
  - Blood pressure increased [Unknown]
  - Vision blurred [Unknown]
